FAERS Safety Report 6148679-0 (Version None)
Quarter: 2009Q2

REPORT INFORMATION
  Report Type: 
  Country: None (occurrence: None)
  Receive Date: 20090406
  Receipt Date: 20090406
  Transmission Date: 20091009
  Serious: Yes (Hospitalization)
  Sender: FDA-Public Use
  Company Number: None

PATIENT
  Sex: Female
  Weight: 60.2 kg

DRUGS (19)
  1. LIPOSOMAL DOXORUBICIN [Suspect]
     Indication: BREAST CANCER METASTATIC
     Dosage: 40MG/M2 Q3WEEKS IV
     Route: 042
     Dates: start: 20090310, end: 20090401
  2. M.V.I. [Concomitant]
  3. CALCIUM [Concomitant]
  4. IBUPROFEN [Concomitant]
  5. ROBITUSSIN DM [Concomitant]
  6. ALLEGRA D 24 HOUR [Concomitant]
  7. OXYCONTIN [Concomitant]
  8. OXYCODONE HCL [Concomitant]
  9. MAGOX [Concomitant]
  10. TUSSIONEX [Concomitant]
  11. ZOFRAN [Concomitant]
  12. DECADRON [Concomitant]
  13. MORPHINE [Concomitant]
  14. CIMETIDINE HCL [Concomitant]
  15. BENADRYL [Concomitant]
  16. ATIVAN [Concomitant]
  17. MAGNESIUM SULFATE [Concomitant]
  18. . [Concomitant]
  19. . [Concomitant]

REACTIONS (6)
  - CONFUSIONAL STATE [None]
  - DEHYDRATION [None]
  - HEADACHE [None]
  - MENTAL STATUS CHANGES [None]
  - NAUSEA [None]
  - VOMITING [None]
